FAERS Safety Report 14887178 (Version 2)
Quarter: 2018Q2

REPORT INFORMATION
  Report Type: Spontaneous
  Country: US (occurrence: US)
  Receive Date: 20180513
  Receipt Date: 20180518
  Transmission Date: 20180711
  Serious: Yes (Other)
  Sender: FDA-Public Use
  Company Number: US-009507513-1805USA002289

PATIENT
  Age: 88 Year
  Sex: Female

DRUGS (2)
  1. SINEMET [Suspect]
     Active Substance: CARBIDOPA\LEVODOPA
     Indication: HYPOTHERMIA
     Dosage: 50/500 MG
  2. SINEMET [Suspect]
     Active Substance: CARBIDOPA\LEVODOPA
     Dosage: 25/250 MG

REACTIONS (7)
  - Delirium [Unknown]
  - Agitation [Unknown]
  - Incorrect route of drug administration [Unknown]
  - Off label use [Unknown]
  - Atrial fibrillation [Unknown]
  - Dyskinesia [Unknown]
  - Cardiac failure [Unknown]
